FAERS Safety Report 12946969 (Version 1)
Quarter: 2016Q4

REPORT INFORMATION
  Report Type: Spontaneous
  Country: US (occurrence: US)
  Receive Date: 20161116
  Receipt Date: 20161116
  Transmission Date: 20170207
  Serious: No
  Sender: FDA-Public Use
  Company Number: US-GLAXOSMITHKLINE-US2016GSK167870

PATIENT
  Sex: Female

DRUGS (7)
  1. LEVOTHYROXINE. [Suspect]
     Active Substance: LEVOTHYROXINE
  2. AUGMENTIN [Suspect]
     Active Substance: AMOXICILLIN\CLAVULANATE POTASSIUM
  3. ATORVASTATIN [Suspect]
     Active Substance: ATORVASTATIN
  4. FLUTICASONE NASAL SPRAY [Suspect]
     Active Substance: FLUTICASONE\FLUTICASONE PROPIONATE
  5. GABAPENTIN. [Suspect]
     Active Substance: GABAPENTIN
  6. WELLBUTRIN [Suspect]
     Active Substance: BUPROPION HYDROCHLORIDE
  7. CODEINE PHOSPHATE [Suspect]
     Active Substance: CODEINE PHOSPHATE

REACTIONS (1)
  - Drug hypersensitivity [Unknown]
